FAERS Safety Report 10278591 (Version 1)
Quarter: 2014Q3

REPORT INFORMATION
  Report Type: Report from Study
  Country: CA (occurrence: CA)
  Receive Date: 20140704
  Receipt Date: 20140704
  Transmission Date: 20150326
  Serious: Yes (Death)
  Sender: FDA-Public Use
  Company Number: CA-BRISTOL-MYERS SQUIBB COMPANY-21155908

PATIENT
  Age: 83 Year
  Sex: Female

DRUGS (11)
  1. ULORIC [Concomitant]
     Active Substance: FEBUXOSTAT
  2. FUROSEMIDE. [Concomitant]
     Active Substance: FUROSEMIDE
  3. RAMIPRIL. [Concomitant]
     Active Substance: RAMIPRIL
  4. SPIRIVA [Concomitant]
     Active Substance: TIOTROPIUM BROMIDE MONOHYDRATE
  5. PREDNISONE. [Concomitant]
     Active Substance: PREDNISONE
  6. ASPIRIN. [Concomitant]
     Active Substance: ASPIRIN
  7. ARAVA [Concomitant]
     Active Substance: LEFLUNOMIDE
  8. GLYCERYL TRINITRATE [Concomitant]
     Active Substance: NITROGLYCERIN
  9. ABATACEPT SUBQ INJECTION 125MG/ML [Suspect]
     Active Substance: ABATACEPT
     Indication: RHEUMATOID ARTHRITIS
     Route: 058
     Dates: start: 20140326, end: 2014
  10. PREVACID [Concomitant]
     Active Substance: LANSOPRAZOLE
  11. TECTA [Concomitant]
     Active Substance: PANTOPRAZOLE MAGNESIUM

REACTIONS (1)
  - Sudden death [Fatal]

NARRATIVE: CASE EVENT DATE: 20140603
